FAERS Safety Report 12750976 (Version 1)
Quarter: 2016Q3

REPORT INFORMATION
  Report Type: Spontaneous
  Country: US (occurrence: US)
  Receive Date: 20160915
  Receipt Date: 20160915
  Transmission Date: 20161109
  Serious: No
  Sender: FDA-Public Use
  Company Number: US-ASTELLAS-2016US020581

PATIENT
  Age: 74 Year
  Sex: Male

DRUGS (1)
  1. XTANDI [Suspect]
     Active Substance: ENZALUTAMIDE
     Indication: PROSTATE CANCER
     Route: 048
     Dates: start: 20151105

REACTIONS (9)
  - Diarrhoea [Recovering/Resolving]
  - Memory impairment [Recovering/Resolving]
  - Scrotal erythema [Recovering/Resolving]
  - Drug dose omission [Unknown]
  - Arthralgia [Recovering/Resolving]
  - Back pain [Not Recovered/Not Resolved]
  - Penile size reduced [Not Recovered/Not Resolved]
  - Dysuria [Recovering/Resolving]
  - Somnolence [Recovering/Resolving]

NARRATIVE: CASE EVENT DATE: 201605
